FAERS Safety Report 25881116 (Version 1)
Quarter: 2025Q4

REPORT INFORMATION
  Report Type: Spontaneous
  Country: US (occurrence: US)
  Receive Date: 20251004
  Receipt Date: 20251004
  Transmission Date: 20260118
  Serious: No
  Sender: MANKIND PHARMA
  Company Number: US-MankindUS-000448

PATIENT
  Sex: Female

DRUGS (1)
  1. NITROGLYCERIN [Suspect]
     Active Substance: NITROGLYCERIN
     Indication: Myocardial infarction
     Dosage: STRENGTH: 0.4 MG, PKG SIZE: 100?FREQUENCY: AS NEEDED
     Route: 060

REACTIONS (4)
  - Drug ineffective [Unknown]
  - Product size issue [Unknown]
  - Product solubility abnormal [Unknown]
  - Incorrect dose administered [Unknown]

NARRATIVE: CASE EVENT DATE: 20250601
